FAERS Safety Report 4420408-8 (Version None)
Quarter: 2004Q3

REPORT INFORMATION
  Report Type: 
  Country: None (occurrence: None)
  Receive Date: 20040809
  Receipt Date: 20040219
  Transmission Date: 20050211
  Serious: No
  Sender: FDA-Public Use
  Company Number: US-GLAXOSMITHKLINE-A0498876A

PATIENT
  Age: 74 Year
  Sex: Female

DRUGS (7)
  1. PAXIL CR [Suspect]
     Indication: DEPRESSION
     Dosage: 5MG PER DAY
     Route: 048
     Dates: start: 20040203
  2. SYNTHROID [Concomitant]
  3. CLONAZEPAM [Concomitant]
  4. PROCARDIA [Concomitant]
  5. COZAAR [Concomitant]
  6. COREG [Concomitant]
  7. PREMARIN [Concomitant]

REACTIONS (2)
  - ASTHENIA [None]
  - NERVOUSNESS [None]
